FAERS Safety Report 20793596 (Version 7)
Quarter: 2024Q4

REPORT INFORMATION
  Report Type: Spontaneous
  Country: CA (occurrence: CA)
  Receive Date: 20220506
  Receipt Date: 20241211
  Transmission Date: 20250115
  Serious: Yes (Other)
  Sender: CELLTRION
  Company Number: CA-CELLTRION INC.-2021CA016652

PATIENT

DRUGS (16)
  1. INFLECTRA [Suspect]
     Active Substance: INFLIXIMAB-DYYB
     Indication: Colitis ulcerative
     Dosage: 500 MG, INDUCTION AT EVERY 0, 2, 6 WEEKS THEN EVERY 4 WEEKS
     Route: 042
     Dates: start: 2021
  2. INFLECTRA [Suspect]
     Active Substance: INFLIXIMAB-DYYB
     Dosage: 500 MG, INDUCTION AT EVERY 0, 2, 6 WEEKS THEN EVERY 4 WEEKS
     Route: 042
     Dates: start: 20211123
  3. INFLECTRA [Suspect]
     Active Substance: INFLIXIMAB-DYYB
     Dosage: 500 MG, INDUCTION AT EVERY 0, 2, 6 WEEKS THEN EVERY 4 WEEKS
     Route: 042
     Dates: start: 20220127
  4. INFLECTRA [Suspect]
     Active Substance: INFLIXIMAB-DYYB
     Dosage: 500 MG, INDUCTION AT EVERY 0, 2, 6 WEEKS THEN EVERY 4 WEEKS
     Route: 042
     Dates: start: 20220421
  5. INFLECTRA [Suspect]
     Active Substance: INFLIXIMAB-DYYB
     Dosage: 500 MG, INDUCTION AT EVERY 0, 2, 6 WEEKS THEN EVERY 4 WEEKS
     Route: 042
     Dates: start: 20220721
  6. INFLECTRA [Suspect]
     Active Substance: INFLIXIMAB-DYYB
     Dosage: 500 MG, RECEIVED AFTER 6 WEEKS (PRESCRIBED EVERY 4 WEEKS)
     Route: 042
     Dates: start: 20220901
  7. INFLECTRA [Suspect]
     Active Substance: INFLIXIMAB-DYYB
     Dosage: 500 MG, 0, 2, 6, THEN EVERY 4 WEEKS INDUCTION DOSES AT HOSPITAL
     Route: 042
     Dates: start: 20230908
  8. INFLECTRA [Suspect]
     Active Substance: INFLIXIMAB-DYYB
     Dosage: 500 MG, AFTER 7 WEEKS (PRESCRIBED EVERY 4 WEEKS)
     Route: 042
     Dates: start: 20231027
  9. INFLECTRA [Suspect]
     Active Substance: INFLIXIMAB-DYYB
     Dosage: 500 MG, AFTER 7 WEEKS
     Route: 042
     Dates: start: 20240522
  10. INFLECTRA [Suspect]
     Active Substance: INFLIXIMAB-DYYB
     Dosage: 500 MG, AFTER 7 WEEKS AND 1 DAY (PRESCRIBED EVERY 4 WEEKS)
     Route: 042
     Dates: start: 20240711
  11. INFLECTRA [Suspect]
     Active Substance: INFLIXIMAB-DYYB
     Dosage: 500 MG, 9 WEEKS AND 4 DAYS (500 MG,PRESCRIBED EVERY 4 WEEKS)
     Route: 042
     Dates: start: 20240916
  12. INFLECTRA [Suspect]
     Active Substance: INFLIXIMAB-DYYB
     Dosage: 500 MG, 0, 2, 6, THEN EVERY 4 WEEKS INDUCTION DOSES AT HOSPITAL
     Route: 042
     Dates: start: 20241023
  13. INFLECTRA [Suspect]
     Active Substance: INFLIXIMAB-DYYB
     Dosage: 500 MG, 5 WEEKS AND 5 DAYS (500 MG, Q 0, 2, 6, THEN EVERY 4 WEEKS INDUCTION DOSES AT HOSPITAL)
     Route: 042
     Dates: start: 20241202
  14. MESALAMINE [Concomitant]
     Active Substance: MESALAMINE
     Dosage: UNK
  15. PREDNISONE [Concomitant]
     Active Substance: PREDNISONE
     Dosage: UNK
  16. MESALAMINE [Concomitant]
     Active Substance: MESALAMINE
     Dosage: UNK

REACTIONS (8)
  - Iron deficiency [Unknown]
  - Weight increased [Not Recovered/Not Resolved]
  - Hypotension [Unknown]
  - Dizziness [Unknown]
  - Off label use [Unknown]
  - Off label use [Unknown]
  - Intentional product use issue [Unknown]
  - Inappropriate schedule of product administration [Unknown]

NARRATIVE: CASE EVENT DATE: 20220127
